FAERS Safety Report 24908013 (Version 1)
Quarter: 2025Q1

REPORT INFORMATION
  Report Type: Report from Study
  Country: US (occurrence: US)
  Receive Date: 20250131
  Receipt Date: 20250131
  Transmission Date: 20250408
  Serious: Yes (Other)
  Sender: JAZZ
  Company Number: US-JAZZ PHARMACEUTICALS-2024-US-023339

PATIENT
  Sex: Male

DRUGS (13)
  1. XYWAV [Suspect]
     Active Substance: CALCIUM OXYBATE\MAGNESIUM OXYBATE\POTASSIUM OXYBATE\SODIUM OXYBATE
     Indication: Narcolepsy
  2. XYWAV [Suspect]
     Active Substance: CALCIUM OXYBATE\MAGNESIUM OXYBATE\POTASSIUM OXYBATE\SODIUM OXYBATE
     Indication: Cataplexy
  3. XYWAV [Suspect]
     Active Substance: CALCIUM OXYBATE\MAGNESIUM OXYBATE\POTASSIUM OXYBATE\SODIUM OXYBATE
     Indication: Somnolence
  4. ASPIRIN [Concomitant]
     Active Substance: ASPIRIN
     Dates: start: 20151006
  5. DOCUSATE SODIUM [Concomitant]
     Active Substance: DOCUSATE SODIUM
     Dates: start: 20151006
  6. IMITREX [Concomitant]
     Active Substance: SUMATRIPTAN SUCCINATE
     Dates: start: 20151006
  7. LORATADINE [Concomitant]
     Active Substance: LORATADINE
     Dates: start: 20190927
  8. THERA GESIC [Concomitant]
     Dates: start: 20190927
  9. ARTIFICIAL TEARS [CARMELLOSE SODIUM] [Concomitant]
     Dates: start: 20220103
  10. PANTOPRAZOLE SODIUM [Concomitant]
     Active Substance: PANTOPRAZOLE SODIUM
     Dates: start: 20230630
  11. FISH OIL [Concomitant]
     Active Substance: FISH OIL
     Dates: start: 20240101
  12. EZETIMIBE [Concomitant]
     Active Substance: EZETIMIBE
     Dates: start: 20240829
  13. FAMOTIDINE [Concomitant]
     Active Substance: FAMOTIDINE
     Dates: start: 20240829

REACTIONS (2)
  - Surgery [Unknown]
  - Medical procedure [Unknown]
